FAERS Safety Report 9747907 (Version 1)
Quarter: 2013Q4

REPORT INFORMATION
  Report Type: Spontaneous
  Country: US (occurrence: US)
  Receive Date: 20131212
  Receipt Date: 20131212
  Transmission Date: 20140711
  Serious: No
  Sender: FDA-Public Use
  Company Number: US-TEVA-388343USA

PATIENT
  Age: 29 Year
  Sex: Female
  Weight: 63.56 kg

DRUGS (4)
  1. PARAGARD 380A [Suspect]
     Indication: CONTRACEPTION
     Route: 015
     Dates: start: 20091109, end: 20130222
  2. LAMICTAL [Concomitant]
     Indication: AFFECTIVE DISORDER
  3. ABILIFY [Concomitant]
     Indication: DEPRESSION
  4. PAXIL CR [Concomitant]
     Indication: DEPRESSION

REACTIONS (1)
  - Device expulsion [Recovered/Resolved]
